FAERS Safety Report 17113453 (Version 1)
Quarter: 2019Q4

REPORT INFORMATION
  Report Type: Spontaneous
  Country: CA (occurrence: CA)
  Receive Date: 20191205
  Receipt Date: 20191205
  Transmission Date: 20200122
  Serious: Yes (Hospitalization, Other)
  Sender: FDA-Public Use
  Company Number: CA-AUROBINDO-AUR-APL-2019-076901

PATIENT
  Sex: Male

DRUGS (4)
  1. PAXIL [Suspect]
     Active Substance: PAROXETINE HYDROCHLORIDE
     Indication: BIPOLAR DISORDER
     Dosage: UNK
     Route: 065
  2. QUETIAPINE FILM-COATED TABLET [Suspect]
     Active Substance: QUETIAPINE
     Indication: PRODUCT USED FOR UNKNOWN INDICATION
     Dosage: UNK
     Route: 065
  3. TEMAZEPAM. [Suspect]
     Active Substance: TEMAZEPAM
     Indication: BIPOLAR DISORDER
     Dosage: UNK
     Route: 065
  4. ATIVAN [Concomitant]
     Active Substance: LORAZEPAM
     Indication: PRODUCT USED FOR UNKNOWN INDICATION
     Dosage: UNK
     Route: 065

REACTIONS (19)
  - Aggression [Unknown]
  - Erectile dysfunction [Unknown]
  - Underweight [Unknown]
  - Borderline personality disorder [Unknown]
  - Fatigue [Unknown]
  - Hair transplant [Unknown]
  - Weight increased [Unknown]
  - Fear [Unknown]
  - Impulsive behaviour [Unknown]
  - Increased appetite [Unknown]
  - Schizophrenia [Unknown]
  - Trichotillomania [Unknown]
  - Ill-defined disorder [Unknown]
  - Psychotic disorder [Unknown]
  - Anxiety [Unknown]
  - Hallucination, auditory [Unknown]
  - Depression [Unknown]
  - Sexually transmitted disease [Unknown]
  - Sleep disorder [Unknown]
